FAERS Safety Report 8224324-5 (Version None)
Quarter: 2012Q1

REPORT INFORMATION
  Report Type: 
  Country: None (occurrence: None)
  Receive Date: 20120319
  Receipt Date: 20120305
  Transmission Date: 20120608
  Serious: Yes (Other)
  Sender: FDA-Public Use
  Company Number: AUR-APL-2012-01328

PATIENT
  Age: 67 Year
  Sex: Female
  Weight: 82.09 kg

DRUGS (6)
  1. LEVOTHYROXINE SODIUM [Concomitant]
  2. LIPITOR [Suspect]
     Indication: CARDIAC DISORDER
     Dosage: (60 MG) ; (60MG AND 40MG DAILY ON ALTERNATE DAYS (40 MG)
  3. METOPROLOL TARTRATE [Suspect]
     Indication: PRODUCT USED FOR UNKNOWN INDICATION
  4. ASPIRIN [Concomitant]
  5. VITAMIN D [Concomitant]
  6. CALCIUM CARBONATE [Concomitant]

REACTIONS (2)
  - POLLAKIURIA [None]
  - MEMORY IMPAIRMENT [None]
